FAERS Safety Report 9180764 (Version 1)
Quarter: 2013Q1

REPORT INFORMATION
  Report Type: Spontaneous
  Country: US (occurrence: US)
  Receive Date: 20130322
  Receipt Date: 20130322
  Transmission Date: 20140127
  Serious: Yes (Life-Threatening)
  Sender: FDA-Public Use
  Company Number: US-JNJFOC-20130312086

PATIENT
  Sex: Female

DRUGS (3)
  1. XARELTO [Suspect]
     Indication: THROMBOSIS PROPHYLAXIS
     Route: 048
     Dates: start: 20121029, end: 20121030
  2. XARELTO [Suspect]
     Indication: ANTICOAGULANT THERAPY
     Route: 048
     Dates: start: 20121029, end: 20121030
  3. XARELTO [Suspect]
     Indication: HIP SURGERY
     Route: 048
     Dates: start: 20121029, end: 20121030

REACTIONS (4)
  - Hypersensitivity [Recovered/Resolved]
  - Contusion [Recovered/Resolved]
  - Joint swelling [Recovered/Resolved]
  - Incision site haemorrhage [Recovered/Resolved]
